FAERS Safety Report 19077356 (Version 1)
Quarter: 2021Q1

REPORT INFORMATION
  Report Type: Spontaneous
  Country: US (occurrence: US)
  Receive Date: 20210331
  Receipt Date: 20210331
  Transmission Date: 20210420
  Serious: Yes (Disabling)
  Sender: FDA-Public Use
  Company Number: None

PATIENT
  Age: 35 Year
  Sex: Male
  Weight: 67.5 kg

DRUGS (5)
  1. PERIDEX [Suspect]
     Active Substance: CHLORHEXIDINE GLUCONATE
     Indication: GINGIVITIS
     Dosage: ?          QUANTITY:2 BOTTLES;?
     Route: 048
     Dates: start: 20210108, end: 20210123
  2. MULTIVITAMINS [Concomitant]
     Active Substance: VITAMINS
  3. VITAMIN D [Concomitant]
     Active Substance: VITAMIN D NOS
  4. ZYRTEC [Concomitant]
     Active Substance: CETIRIZINE HYDROCHLORIDE
  5. FLONASE [Concomitant]
     Active Substance: FLUTICASONE PROPIONATE

REACTIONS (7)
  - Nasal inflammation [None]
  - Burkholderia infection [None]
  - Urticaria [None]
  - Product contamination microbial [None]
  - Recalled product [None]
  - Nasal polyps [None]
  - Skin wrinkling [None]

NARRATIVE: CASE EVENT DATE: 20210128
